FAERS Safety Report 23516394 (Version 1)
Quarter: 2024Q1

REPORT INFORMATION
  Report Type: Spontaneous
  Country: GB (occurrence: GB)
  Receive Date: 20240213
  Receipt Date: 20240213
  Transmission Date: 20240410
  Serious: Yes (Life-Threatening, Hospitalization, Other)
  Sender: FDA-Public Use
  Company Number: None

PATIENT
  Age: 91 Year
  Sex: Female
  Weight: 54 kg

DRUGS (22)
  1. LINEZOLID [Suspect]
     Active Substance: LINEZOLID
     Indication: Product used for unknown indication
     Dosage: 1200 MILLIGRAM, QD (ONE DAY, TABLET)
     Route: 065
     Dates: start: 20230906
  2. AMLODIPINE [Concomitant]
     Active Substance: AMLODIPINE BESYLATE
     Indication: Product used for unknown indication
     Dosage: 1 DOSAGE FORM, QD (ONE DAY)
     Route: 065
     Dates: start: 20220504
  3. ASPIRIN [Concomitant]
     Active Substance: ASPIRIN
     Indication: Product used for unknown indication
     Dosage: 1 DOSAGE FORM, QD (ONE DAY)
     Route: 065
     Dates: start: 20230830
  4. ATORVASTATIN [Concomitant]
     Active Substance: ATORVASTATIN
     Indication: Product used for unknown indication
     Dosage: 1 DOSAGE FORM, HS (AT NIGHT, ONE DAY)
     Route: 065
     Dates: start: 20230830
  5. CLOPIDOGREL [Concomitant]
     Active Substance: CLOPIDOGREL BISULFATE
     Indication: Product used for unknown indication
     Dosage: 1 DOSAGE FORM, QD (ONE DAY)
     Route: 065
     Dates: start: 20220504
  6. CLOTRIMAZOLE [Concomitant]
     Active Substance: CLOTRIMAZOLE
     Indication: Product used for unknown indication
     Dosage: 3 DOSAGE FORM, QD (ONE DAY)
     Route: 061
     Dates: start: 20230822, end: 20230829
  7. AMOXICILLIN\CLAVULANATE POTASSIUM [Concomitant]
     Active Substance: AMOXICILLIN\CLAVULANATE POTASSIUM
     Indication: Product used for unknown indication
     Dosage: 1875 MILLIGRAM, QD (ONE DAY)
     Route: 065
     Dates: start: 20230906
  8. DICLOFENAC DIETHYLAMINE [Concomitant]
     Active Substance: DICLOFENAC DIETHYLAMINE
     Indication: Product used for unknown indication
     Dosage: 3 DOSAGE FORM, QD (ONE DAY, APPLY)
     Route: 061
     Dates: start: 20220504, end: 20230621
  9. FLUCLOXACILLIN [Concomitant]
     Active Substance: FLUCLOXACILLIN
     Indication: Product used for unknown indication
     Dosage: 4 DOSAGE FORM, QD (ONE DAY)
     Route: 065
     Dates: start: 20230707, end: 20230714
  10. HYDROCORTISONE [Concomitant]
     Active Substance: HYDROCORTISONE
     Indication: Product used for unknown indication
     Dosage: 2 DOSAGE FORM, QD (ONE DAY)
     Route: 061
     Dates: start: 20230912
  11. LACTULOSE [Concomitant]
     Active Substance: LACTULOSE
     Indication: Product used for unknown indication
     Dosage: 30 MILLILITER, QD (ONE DAY)
     Route: 065
     Dates: start: 20230830
  12. LANSOPRAZOLE [Concomitant]
     Active Substance: LANSOPRAZOLE
     Indication: Product used for unknown indication
     Dosage: 1 DOSAGE FORM, QD (ONE DAY)
     Route: 065
     Dates: start: 20220504
  13. NEFOPAM [Concomitant]
     Active Substance: NEFOPAM
     Indication: Product used for unknown indication
     Dosage: 1 DOSAGE FORM, PRN (AS NECESSARY, THREE TIMES DAILY)
     Route: 065
     Dates: start: 20230912
  14. ACETAMINOPHEN [Concomitant]
     Active Substance: ACETAMINOPHEN
     Indication: Product used for unknown indication
     Dosage: UNK, PRN (TAKE TWO TABLETS FOUR TIMES A DAY, IF NEEDED FO...)
     Route: 065
     Dates: start: 20220504
  15. PREGABALIN [Concomitant]
     Active Substance: PREGABALIN
     Indication: Product used for unknown indication
     Dosage: 2 DOSAGE FORM, QD (ONE DAY)
     Route: 065
     Dates: start: 20220504
  16. PROCHLORPERAZINE [Concomitant]
     Active Substance: PROCHLORPERAZINE
     Indication: Illness
     Dosage: UNK, PRN (USE TWICE DAILY AS NEEDED)
     Route: 065
     Dates: start: 20230901, end: 20230916
  17. RAMIPRIL [Concomitant]
     Active Substance: RAMIPRIL
     Indication: Product used for unknown indication
     Dosage: 1 DOSAGE FORM, QD (MORNING)
     Route: 065
     Dates: start: 20230830
  18. SENNA [Concomitant]
     Active Substance: SENNA LEAF\SENNOSIDES\SENNOSIDES A AND B
     Indication: Product used for unknown indication
     Dosage: 2 DOSAGE FORM, HS (NIGHT)
     Route: 065
     Dates: start: 20230830
  19. SILVERCEL [Concomitant]
     Indication: Product used for unknown indication
     Dosage: UNK (USE AS DIRECTED, NON-ADHERENT)
     Route: 065
     Dates: start: 20230917
  20. TOUJEO [Concomitant]
     Active Substance: INSULIN GLARGINE
     Indication: Product used for unknown indication
     Dosage: UNK (USE AS DIRECTED)
     Route: 065
     Dates: start: 20220504
  21. YALTORMIN SR [Concomitant]
     Indication: Product used for unknown indication
     Dosage: 2 DOSAGE FORM (SUSTAINED RELEASE)
     Route: 065
     Dates: start: 20220504
  22. Zerobase [Concomitant]
     Indication: Product used for unknown indication
     Dosage: UNK (APPLY TO DRY SKIN AS OFTEN AS NEEDED- USE PLENTY)
     Route: 065
     Dates: start: 20220504

REACTIONS (2)
  - Cytopenia [Unknown]
  - Lactic acidosis [Recovering/Resolving]
